FAERS Safety Report 8610226-9 (Version None)
Quarter: 2012Q3

REPORT INFORMATION
  Report Type: 
  Country: None (occurrence: None)
  Receive Date: 20120822
  Receipt Date: 20120810
  Transmission Date: 20120928
  Serious: Yes (Life-Threatening, Hospitalization, Other)
  Sender: FDA-Public Use
  Company Number: US-BRISTOL-MYERS SQUIBB COMPANY-16849754

PATIENT
  Age: 62 Year
  Sex: Female

DRUGS (27)
  1. CARBOPLATIN [Suspect]
     Indication: NEOPLASM
     Dosage: 1DF: 4AUC ON DAY 1 OF EACH 21 DAY CYCLE
     Route: 042
     Dates: start: 20120321
  2. ALPRAZOLAM [Concomitant]
     Indication: PREMEDICATION
     Dates: start: 20111011
  3. SODIUM CHLORIDE [Concomitant]
     Dosage: 1000 ML INF ONCE: 02MAY12 TO 02MAY12,23MAY12 TO 23 MAY12,22MAY12 TO 22MAY12
     Dates: start: 20120502, end: 20120502
  4. DEXAMETHASONE [Concomitant]
     Indication: PREMEDICATION
     Dosage: 21MAR-ONGOIN: 4MG, 02MAY12: 20MG, 12JUN-13JUN12:30MG, 6JUL:30MG
     Dates: start: 20120321
  5. ACETAMINOPHEN [Concomitant]
     Indication: PREMEDICATION
     Dosage: ONCE,02MAY12 TO 02MAY12,12JUN12 TO 12JUN12.
     Dates: start: 20120612, end: 20120612
  6. ONDANSETRON [Concomitant]
     Indication: PREMEDICATION
     Dosage: 21MAR12-ONGOIN:16MG, 23MAY12:16MG, 13JUN12:25MG, 5JUN-6JUN12:4MG, 6JUL12:16MG
     Dates: start: 20120321
  7. PEGFILGRASTIM [Concomitant]
     Indication: NEUTROPHIL COUNT DECREASED
     Dosage: 28MAR12, 18APR12, 10MAY12, 30MAY12
     Dates: start: 20120328
  8. PROCHLORPERAZINE EDISYLATE [Concomitant]
     Indication: VOMITING
     Dates: start: 20120705, end: 20120706
  9. APREPITANT [Concomitant]
     Indication: PREMEDICATION
     Dosage: 125MGONCE:02MY12TO02MY12,23MY12TO23 MY12,13JUN12TO13JUN12,6JUL12TO6JUL12, 80MG(1/DAY):3MY12TO3MY12
     Dates: start: 20120502, end: 20120502
  10. OMEGA 3 FATTY ACID [Concomitant]
     Indication: NUTRITIONAL SUPPORT
     Dosage: 1DF:1TAB
     Dates: start: 20120215
  11. ERGOCALCIFEROL [Concomitant]
     Indication: NUTRITIONAL SUPPORT
     Dates: start: 20111019
  12. ESOMEPRAZOLE SODIUM [Concomitant]
     Dosage: 20MG ONCE:01MAY2012 TO 1MAY2012, 23MAY12 TO 23MAY12, 40 MG(1/DAY):06JUL12 TO 06JUL12
     Dates: start: 20120501, end: 20120501
  13. DOCUSATE SODIUM [Concomitant]
     Indication: CONSTIPATION
     Dosage: 1DF:1TAB
     Dates: start: 20120323
  14. HYDROCORTISONE [Concomitant]
     Dosage: ONCE, 13JUN2012
     Dates: start: 20120705
  15. LORAZEPAM [Concomitant]
     Indication: PREMEDICATION
     Dosage: 1MG ONCE:23MAY12 TO 23MAY12, 12JUN12 TO 12JUN12. 4MG(1 MG AS 4 TIMES PER/DAY):05JUL12 TO 06JUL12.
     Dates: start: 20120523, end: 20120523
  16. ACETAMINOPHEN [Concomitant]
     Indication: HEADACHE
     Dosage: ONCE,02MAY12 TO 02MAY12,12JUN12 TO 12JUN12.
     Dates: start: 20120612, end: 20120612
  17. PEPCID [Concomitant]
     Indication: PREMEDICATION
     Dosage: 20 MG ONCE:02MAY12 TO 02MAY12,23MAY12 TO 23MAY12,13JUN12 TO 13JUN12, 16MG ONCE:06JUL12 TO 06JUL12.
     Dates: start: 20120502, end: 20120502
  18. APREPITANT [Concomitant]
     Indication: PROPHYLAXIS
     Dosage: 125MGONCE:02MY12TO02MY12,23MY12TO23 MY12,13JUN12TO13JUN12,6JUL12TO6JUL12, 80MG(1/DAY):3MY12TO3MY12
     Dates: start: 20120502, end: 20120502
  19. HEPARIN [Concomitant]
     Indication: INTRAVENOUS CATHETER MANAGEMENT
     Dosage: 1DF:500UNITS NOS
     Dates: start: 20120321
  20. BENADRYL [Concomitant]
     Indication: PREMEDICATION
     Dosage: 1DF: 11APR12-50MG, 02MAY12-25MG, 23MAY12,13JUN2012:50MG.06JUL12-25MG,06JUL12-50MG(4 HRS AS NEEDED).
     Dates: start: 20120411
  21. PROCHLORPERAZINE EDISYLATE [Concomitant]
     Indication: NAUSEA
     Dates: start: 20120705, end: 20120706
  22. HYDROCORTISONE SODIUM SUCCINATE [Concomitant]
     Dosage: ONCE
     Dates: start: 20120613, end: 20120613
  23. MULTI-VITAMIN [Concomitant]
     Indication: NUTRITIONAL SUPPORT
     Dosage: 1 DOSAGEFORM = 1 TAB
     Route: 048
     Dates: start: 20120215
  24. GEMCITABINE HYDROCHLORIDE [Suspect]
     Indication: NEOPLASM
     Dosage: 12JUN12 END OF CYCLE 4, DAY 1 AND 8 OF EACH 21 DAY CYCLE
     Route: 042
     Dates: start: 20120411
  25. LEVOTHYROXINE SODIUM [Concomitant]
     Indication: HYPOTHYROIDISM
     Dates: start: 20110101
  26. OMEPRAZOLE [Concomitant]
     Indication: GASTROOESOPHAGEAL REFLUX DISEASE
     Dates: start: 20111019
  27. PEGFILGRASTIM [Concomitant]
     Indication: PROPHYLAXIS
     Dosage: 28MAR12, 18APR12, 10MAY12, 30MAY12
     Dates: start: 20120328

REACTIONS (1)
  - APPENDICITIS [None]
